FAERS Safety Report 12260470 (Version 2)
Quarter: 2016Q2

REPORT INFORMATION
  Report Type: Spontaneous
  Country: GB (occurrence: GB)
  Receive Date: 20160412
  Receipt Date: 20160418
  Transmission Date: 20160815
  Serious: Yes (Life-Threatening, Hospitalization, Other)
  Sender: FDA-Public Use
  Company Number: GB-ACTAVIS-2016-06836

PATIENT
  Age: 27 Year
  Sex: Female

DRUGS (4)
  1. FLUOXETINE [Concomitant]
     Active Substance: FLUOXETINE HYDROCHLORIDE
     Indication: PSYCHOTIC DISORDER
     Dosage: 40 MG, UNKNOWN
     Route: 065
  2. METFORM [Concomitant]
     Indication: GLUCOSE TOLERANCE IMPAIRED IN PREGNANCY
     Dosage: UNK
     Route: 065
  3. OLANZAPINE (UNKNOWN) [Suspect]
     Active Substance: OLANZAPINE
     Indication: PSYCHOTIC DISORDER
     Dosage: 20 MG, DAILY
     Route: 065
  4. BETAMETHASONE (UNKNOWN) [Suspect]
     Active Substance: BETAMETHASONE
     Indication: PRODUCT USED FOR UNKNOWN INDICATION
     Dosage: 12 MG, TOTAL, 2 DOSAGE
     Route: 030

REACTIONS (4)
  - Exposure during pregnancy [Recovered/Resolved]
  - Ketoacidosis [Recovering/Resolving]
  - Insulin resistance [Unknown]
  - Gestational diabetes [Not Recovered/Not Resolved]
